FAERS Safety Report 7706865 (Version 2)
Quarter: 2013Q1

REPORT INFORMATION
  Report Type: Spontaneous
  Country: GB (occurrence: None)
  Receive Date: 20101116
  Receipt Date: 20130319
  Transmission Date: 20140127
  Serious: Yes (Life-Threatening, Disabling, Other)
  Sender: FDA-Public Use
  Company Number: 749164

PATIENT
  Age: 67 Year
  Sex: Female
  Weight: 74 kg

DRUGS (9)
  1. CIPROFLOXACIN [Suspect]
     Indication: PRODUCT USED FOR UNKNOWN INDICATION
     Dates: start: 20071012
  2. ALENDRONATE SODIUM [Suspect]
     Indication: PRODUCT USED FOR UNKNOWN INDICATION
     Dosage: ORAL
     Route: 048
     Dates: start: 20071012
  3. AMITRIPTYLINE HYDROCHLORIDE [Suspect]
     Indication: PRODUCT USED FOR UNKNOWN INDICATION
     Dates: start: 20100216
  4. AMLODIPINE [Suspect]
     Indication: PRODUCT USED FOR UNKNOWN INDICATION
     Dates: start: 20071012
  5. ALENDRONATE SODIUM [Suspect]
     Indication: PRODUCT USED FOR UNKNOWN INDICATION
     Dosage: ORAL
     Route: 048
     Dates: start: 20071012
  6. LOSARTAN POTASSIUM [Suspect]
     Indication: HYPERTENSION
     Dosage: 100 MG MILLIGRAM(S) ORAL
     Route: 048
     Dates: start: 20071204
  7. RISEDRONATE SODIUM [Suspect]
     Indication: PRODUCT USED FOR UNKNOWN INDICATION
  8. LASOPRAZOLE [Concomitant]
  9. AMITRIPTYLINE HYDROCHLORIDE [Concomitant]

REACTIONS (15)
  - Panic attack [None]
  - Irritable bowel syndrome [None]
  - Arthralgia [None]
  - Hypertension [None]
  - Heart rate increased [None]
  - Condition aggravated [None]
  - Heart rate irregular [None]
  - Dizziness [None]
  - Syncope [None]
  - Dyspnoea [None]
  - Palpitations [None]
  - Balance disorder [None]
  - Reflexes abnormal [None]
  - Judgement impaired [None]
  - Fear [None]
